FAERS Safety Report 23151898 (Version 1)
Quarter: 2023Q4

REPORT INFORMATION
  Report Type: Spontaneous
  Country: CN (occurrence: CN)
  Receive Date: 20231107
  Receipt Date: 20231107
  Transmission Date: 20240110
  Serious: Yes (Hospitalization, Other)
  Sender: FDA-Public Use
  Company Number: CN-HALEON-CNCH2023APC052049

PATIENT

DRUGS (2)
  1. IBUPROFEN [Suspect]
     Active Substance: IBUPROFEN
     Indication: Pain
     Dosage: 0.3 G, BID
     Route: 048
     Dates: start: 20231016, end: 20231017
  2. IBUPROFEN [Suspect]
     Active Substance: IBUPROFEN
     Indication: Headache

REACTIONS (9)
  - Dizziness [Recovering/Resolving]
  - Glare [Recovering/Resolving]
  - Headache [Recovered/Resolved]
  - Ocular discomfort [Recovering/Resolving]
  - Amaurosis fugax [Recovering/Resolving]
  - Dyspnoea [Recovering/Resolving]
  - Gait inability [Recovering/Resolving]
  - Condition aggravated [Recovering/Resolving]
  - Drug ineffective [Unknown]

NARRATIVE: CASE EVENT DATE: 20231001
